FAERS Safety Report 18170162 (Version 1)
Quarter: 2020Q3

REPORT INFORMATION
  Report Type: Spontaneous
  Country: SE (occurrence: SE)
  Receive Date: 20200819
  Receipt Date: 20200819
  Transmission Date: 20201103
  Serious: Yes (Life-Threatening, Other)
  Sender: FDA-Public Use
  Company Number: SE-MYLANLABS-M-EU-2016050649

PATIENT
  Age: 37 Year
  Sex: Female
  Weight: 80 kg

DRUGS (7)
  1. ROPIVACAINE. [Suspect]
     Active Substance: ROPIVACAINE HYDROCHLORIDE
     Indication: ANAESTHESIA
     Dosage: TOP UP BOLUS OF 3 + 12 ML ROPIVACAINE
     Route: 008
  2. FENTANYL. [Suspect]
     Active Substance: FENTANYL
     Dosage: 50 GRAM
     Route: 008
  3. OXYTOCIN. [Concomitant]
     Active Substance: OXYTOCIN
     Dosage: UNK
  4. DINOPROSTONE. [Concomitant]
     Active Substance: DINOPROSTONE
     Dosage: UNK
  5. MISOPROSTOL. [Concomitant]
     Active Substance: MISOPROSTOL
     Dosage: UNK
  6. PHENYLEPHRINE [Concomitant]
     Active Substance: PHENYLEPHRINE HYDROCHLORIDE
     Indication: BLOOD PRESSURE ABNORMAL
     Dosage: 0.05 MILLIGRAM
  7. FENTANYL. [Suspect]
     Active Substance: FENTANYL
     Indication: ANAESTHESIA
     Dosage: 50 MICROGRAM
     Route: 008

REACTIONS (2)
  - Exposure during pregnancy [Recovered/Resolved]
  - Circulatory collapse [Recovered/Resolved]
